FAERS Safety Report 11417495 (Version 1)
Quarter: 2015Q3

REPORT INFORMATION
  Report Type: Report from Study
  Country: US (occurrence: US)
  Receive Date: 20150825
  Receipt Date: 20150825
  Transmission Date: 20151125
  Serious: No
  Sender: FDA-Public Use
  Company Number: PHEH2015US008332

PATIENT
  Sex: Female
  Weight: 76.2 kg

DRUGS (1)
  1. GILENYA [Suspect]
     Active Substance: FINGOLIMOD HYDROCHLORIDE
     Indication: MULTIPLE SCLEROSIS
     Dosage: 0.5 MG, QD
     Route: 048
     Dates: start: 20150320, end: 20150327

REACTIONS (4)
  - Depressed mood [Recovering/Resolving]
  - Abdominal pain upper [Recovered/Resolved]
  - Feeling abnormal [Recovering/Resolving]
  - Chest pain [Recovered/Resolved]
